FAERS Safety Report 8801333 (Version 3)
Quarter: 2013Q1

REPORT INFORMATION
  Report Type: Spontaneous
  Country: RU (occurrence: RU)
  Receive Date: 20120921
  Receipt Date: 20121126
  Transmission Date: 20140127
  Serious: Yes (Life-Threatening)
  Sender: FDA-Public Use
  Company Number: RU-ABBOTT-12P-251-0985387-00

PATIENT
  Age: 6 Year
  Sex: Male

DRUGS (5)
  1. DEPAKINE CHRONOSPHERE 500MG [Suspect]
     Indication: EPILEPSY
     Dosage: 350 MG DAILY
     Route: 048
  2. DEPAKINE CHRONOSPHERE 500MG [Suspect]
     Dosage: 350 MG DAILY
     Route: 048
     Dates: start: 201209, end: 201209
  3. DEPAKINE CHRONOSPHERE 500MG [Suspect]
     Dosage: 350 MG DAILY
     Route: 048
  4. LAMOTRIGINE [Concomitant]
     Indication: PRODUCT USED FOR UNKNOWN INDICATION
  5. HYDROCORTISONE [Concomitant]
     Indication: PRODUCT USED FOR UNKNOWN INDICATION

REACTIONS (3)
  - Status epilepticus [Unknown]
  - Convulsion [Unknown]
  - Drug ineffective [Unknown]
